FAERS Safety Report 9504433 (Version 5)
Quarter: 2013Q4

REPORT INFORMATION
  Report Type: Report from Study
  Country: US (occurrence: US)
  Receive Date: 20130906
  Receipt Date: 20131025
  Transmission Date: 20140711
  Serious: Yes (Death, Hospitalization)
  Sender: FDA-Public Use
  Company Number: US-JNJFOC-20130902826

PATIENT
  Sex: Male

DRUGS (6)
  1. REMICADE [Suspect]
     Indication: PSORIATIC ARTHROPATHY
     Route: 042
     Dates: start: 2003
  2. REMICADE [Suspect]
     Indication: RHEUMATOID ARTHRITIS
     Route: 042
     Dates: start: 2003
  3. ANTIBIOTICS UNSPECIFIED [Suspect]
     Indication: ADVERSE DRUG REACTION
     Route: 065
     Dates: start: 2012
  4. ANTIBIOTICS UNSPECIFIED [Suspect]
     Indication: COUGH
     Route: 065
     Dates: start: 2012
  5. METHOTREXATE [Suspect]
     Indication: PSORIATIC ARTHROPATHY
     Route: 065
     Dates: start: 2003
  6. METHOTREXATE [Suspect]
     Indication: RHEUMATOID ARTHRITIS
     Route: 065
     Dates: start: 2003

REACTIONS (7)
  - Pneumonia [Fatal]
  - Sepsis [Fatal]
  - Influenza [Fatal]
  - Bronchopulmonary aspergillosis [Unknown]
  - Heart rate increased [Unknown]
  - Adverse drug reaction [Unknown]
  - Malaise [Unknown]
